FAERS Safety Report 8480114-X (Version None)
Quarter: 2012Q2

REPORT INFORMATION
  Report Type: 
  Country: None (occurrence: None)
  Receive Date: 20120629
  Receipt Date: 20120619
  Transmission Date: 20120825
  Serious: Yes (Other)
  Sender: FDA-Public Use
  Company Number: US-ELI_LILLY_AND_COMPANY-US201206007728

PATIENT
  Age: 58 Year
  Sex: Female

DRUGS (1)
  1. CYMBALTA [Suspect]
     Indication: BONE PAIN
     Dosage: 120 MG, QD

REACTIONS (4)
  - STOMATITIS [None]
  - SKIN PAPILLOMA [None]
  - CANDIDIASIS [None]
  - TOOTH EXTRACTION [None]
